FAERS Safety Report 5316725-X (Version None)
Quarter: 2007Q2

REPORT INFORMATION
  Report Type: 
  Country: None (occurrence: None)
  Receive Date: 20070501
  Receipt Date: 20070501
  Transmission Date: 20071010
  Serious: No
  Sender: FDA-Public Use
  Company Number: None

PATIENT
  Age: 41 Year
  Sex: Female

DRUGS (7)
  1. AVONEX [Suspect]
     Dates: start: 20050809, end: 20060127
  2. THYROID TAB [Concomitant]
  3. COPAXONE [Concomitant]
  4. IBUPROFEN [Concomitant]
  5. MULTI-VITAMIN [Concomitant]
  6. OMEGA- #3 [Concomitant]
  7. THYROBALANCE [Concomitant]

REACTIONS (4)
  - ALANINE AMINOTRANSFERASE INCREASED [None]
  - ASPARTATE AMINOTRANSFERASE INCREASED [None]
  - BLOOD ALKALINE PHOSPHATASE INCREASED [None]
  - LIVER INJURY [None]
